FAERS Safety Report 13400148 (Version 2)
Quarter: 2017Q3

REPORT INFORMATION
  Report Type: Spontaneous
  Country: US (occurrence: US)
  Receive Date: 20170404
  Receipt Date: 20170705
  Transmission Date: 20171127
  Serious: No
  Sender: FDA-Public Use
  Company Number: US-PFIZER INC-2017141784

PATIENT
  Age: 47 Year
  Sex: Female
  Weight: 91 kg

DRUGS (7)
  1. VENTOLIN [Concomitant]
     Active Substance: ALBUTEROL SULFATE
     Indication: EMPHYSEMA
  2. VENTOLIN [Concomitant]
     Active Substance: ALBUTEROL SULFATE
     Indication: CHRONIC OBSTRUCTIVE PULMONARY DISEASE
     Dosage: AS NEEDED
  3. VENTOLIN [Concomitant]
     Active Substance: ALBUTEROL SULFATE
     Indication: ASTHMA
  4. NEURONTIN [Suspect]
     Active Substance: GABAPENTIN
     Dosage: UNK [3/600 MG TABLETS 3-4 TIMES DAILY]
  5. VENTOLIN [Concomitant]
     Active Substance: ALBUTEROL SULFATE
     Indication: BRONCHITIS CHRONIC
  6. NEURONTIN [Suspect]
     Active Substance: GABAPENTIN
     Indication: PAIN IN EXTREMITY
     Dosage: 1800 MG, 3X/DAY
     Route: 048
  7. LEVEMIR [Concomitant]
     Active Substance: INSULIN DETEMIR
     Indication: DIABETES MELLITUS
     Dosage: 40 UG, 1X/DAY, EVERY NIGHT, SHOT IN BELLY

REACTIONS (5)
  - Gait disturbance [Unknown]
  - Insomnia [Unknown]
  - Intentional product use issue [Unknown]
  - Drug tolerance increased [Unknown]
  - Drug ineffective [Unknown]
